FAERS Safety Report 5762162-3 (Version None)
Quarter: 2008Q2

REPORT INFORMATION
  Report Type: 
  Country: None (occurrence: None)
  Receive Date: 20080604
  Receipt Date: 20080526
  Transmission Date: 20081010
  Serious: Yes (Hospitalization)
  Sender: FDA-Public Use
  Company Number: 100#08#2008-02857

PATIENT
  Age: 81 Year
  Sex: Female

DRUGS (7)
  1. DIGOXIN [Suspect]
     Indication: HYPERTENSION
  2. DIGOXIN [Suspect]
     Indication: PALPITATIONS
  3. NICARDIPINE (NICARDIPINE) [Suspect]
     Indication: HYPERTENSION
  4. NICARDIPINE (NICARDIPINE) [Suspect]
     Indication: PALPITATIONS
  5. PROPRANOLOL [Suspect]
     Indication: HYPERTENSION
  6. PROPRANOLOL [Suspect]
     Indication: PALPITATIONS
  7. MAGNESIUM CITRATE (MAGNESIUM CITRATE [Concomitant]

REACTIONS (3)
  - COLITIS ISCHAEMIC [None]
  - HAEMOGLOBIN DECREASED [None]
  - WHITE BLOOD CELL COUNT INCREASED [None]
